FAERS Safety Report 18673509 (Version 2)
Quarter: 2020Q4

REPORT INFORMATION
  Report Type: Spontaneous
  Country: US (occurrence: US)
  Receive Date: 20201228
  Receipt Date: 20201230
  Transmission Date: 20210114
  Serious: No
  Sender: FDA-Public Use
  Company Number: US-PFIZER INC-2020510817

PATIENT
  Age: 66 Year
  Sex: Female
  Weight: 60.33 kg

DRUGS (3)
  1. PRISTIQ EXTENDED-RELEASE [Suspect]
     Active Substance: DESVENLAFAXINE SUCCINATE
     Dosage: UNK
  2. ABILIFY [Suspect]
     Active Substance: ARIPIPRAZOLE
     Dosage: 10 MG
  3. ARIPIPRAZOLE. [Suspect]
     Active Substance: ARIPIPRAZOLE
     Dosage: UNK

REACTIONS (1)
  - Therapeutic product effect incomplete [Unknown]
